FAERS Safety Report 17034525 (Version 3)
Quarter: 2021Q3

REPORT INFORMATION
  Report Type: Spontaneous
  Country: CA (occurrence: CA)
  Receive Date: 20191115
  Receipt Date: 20210810
  Transmission Date: 20211014
  Serious: Yes (Other)
  Sender: FDA-Public Use
  Company Number: CA-PFIZER INC-2019492732

PATIENT

DRUGS (24)
  1. CRINONE [Suspect]
     Active Substance: PROGESTERONE
     Dosage: UNK
     Route: 064
  2. DOMPERIDONE [Suspect]
     Active Substance: DOMPERIDONE
     Dosage: UNK
     Route: 064
  3. AZATHIOPRINE. [Suspect]
     Active Substance: AZATHIOPRINE
     Dosage: UNK
     Route: 064
  4. ACETAMINOPHEN. [Suspect]
     Active Substance: ACETAMINOPHEN
     Dosage: UNK
     Route: 064
  5. TYLENOL WITH CODEINE [Suspect]
     Active Substance: ACETAMINOPHEN\CODEINE PHOSPHATE
     Dosage: UNK
     Route: 064
  6. RANITIDINE. [Suspect]
     Active Substance: RANITIDINE
     Dosage: UNK
     Route: 064
  7. IMURAN [Suspect]
     Active Substance: AZATHIOPRINE
     Dosage: UNK
     Route: 064
  8. PANTOPRAZOLE MAGNESIUM [Suspect]
     Active Substance: PANTOPRAZOLE MAGNESIUM
     Dosage: UNK
     Route: 064
  9. DOMPERIDONE MALEATE [Suspect]
     Active Substance: DOMPERIDONE MALEATE
     Dosage: 10 MG
     Route: 064
  10. AZATHIOPRINE. [Suspect]
     Active Substance: AZATHIOPRINE
     Dosage: UNK
     Route: 064
  11. PROGESTERONE. [Suspect]
     Active Substance: PROGESTERONE
     Dosage: UNK
     Route: 064
  12. RANITIDIN [Suspect]
     Active Substance: RANITIDINE HYDROCHLORIDE
     Dosage: UNK
     Route: 064
  13. APO?RANITIDINE [Suspect]
     Active Substance: RANITIDINE
     Dosage: UNK
     Route: 064
  14. CRINONE [Suspect]
     Active Substance: PROGESTERONE
     Dosage: UNK
     Route: 064
  15. DOMPERIDONE MALEATE [Suspect]
     Active Substance: DOMPERIDONE MALEATE
     Dosage: UNK
     Route: 064
  16. MESALAZINE [Suspect]
     Active Substance: MESALAMINE
     Dosage: UNK
     Route: 064
  17. APO?RANITIDINE [Suspect]
     Active Substance: RANITIDINE
     Dosage: UNK
     Route: 064
  18. REMICADE [Suspect]
     Active Substance: INFLIXIMAB
     Indication: COLITIS ULCERATIVE
     Dosage: 600 MG
     Route: 064
  19. RANITIDINE HYDROCHLORIDE. [Suspect]
     Active Substance: RANITIDINE HYDROCHLORIDE
     Route: 064
  20. FOLIC ACID. [Concomitant]
     Active Substance: FOLIC ACID
     Dosage: UNK
     Route: 064
  21. PANTOPRAZOLE [Suspect]
     Active Substance: PANTOPRAZOLE
     Dosage: UNK
     Route: 064
  22. ACETAMINOPHEN;CODEINE PHOSPHATE [Suspect]
     Active Substance: ACETAMINOPHEN\CODEINE PHOSPHATE
     Dosage: UNK
     Route: 064
  23. ACETAMINOPHEN AND CODEINE [Suspect]
     Active Substance: ACETAMINOPHEN\CODEINE PHOSPHATE
     Dosage: UNK
     Route: 064
  24. IRON [Concomitant]
     Active Substance: IRON
     Dosage: UNK
     Route: 064

REACTIONS (2)
  - Maternal exposure during pregnancy [Unknown]
  - Premature labour [Recovered/Resolved]
